FAERS Safety Report 16241962 (Version 1)
Quarter: 2019Q2

REPORT INFORMATION
  Report Type: Spontaneous
  Country: US (occurrence: US)
  Receive Date: 20190426
  Receipt Date: 20190426
  Transmission Date: 20190711
  Serious: Yes (Other)
  Sender: FDA-Public Use
  Company Number: US-LUPIN HEALTHCARE (UK) LIMITED-2019-02491

PATIENT
  Sex: Female
  Weight: 158.73 kg

DRUGS (2)
  1. ZONISAMIDE. [Concomitant]
     Active Substance: ZONISAMIDE
     Indication: PRODUCT USED FOR UNKNOWN INDICATION
     Dosage: UNK
     Route: 065
  2. LEVETIRACETAM TABLETS USP, 750 MG [Suspect]
     Active Substance: LEVETIRACETAM
     Indication: SEIZURE
     Dosage: 750 MILLIGRAM, BID (SINCE 2006-2007)
     Route: 048

REACTIONS (3)
  - Alopecia [Not Recovered/Not Resolved]
  - Seizure [Not Recovered/Not Resolved]
  - Self esteem decreased [Not Recovered/Not Resolved]

NARRATIVE: CASE EVENT DATE: 2016
